FAERS Safety Report 7865319-0 (Version None)
Quarter: 2011Q4

REPORT INFORMATION
  Report Type: 
  Country: None (occurrence: None)
  Receive Date: 20111028
  Receipt Date: 20111019
  Transmission Date: 20120403
  Serious: Yes (Other)
  Sender: FDA-Public Use
  Company Number: CZ-JNJFOC-20111006157

PATIENT
  Sex: Male
  Weight: 130 kg

DRUGS (9)
  1. ACIDUM FOLICUM [Concomitant]
     Indication: PSORIASIS
     Dosage: 1 TBL WEEKLY
  2. REMICADE [Suspect]
     Route: 042
     Dates: start: 20101201
  3. VALSARTAN [Concomitant]
     Indication: HYPERTENSION
  4. METHOTREXATE [Concomitant]
  5. FLAVOBION [Concomitant]
     Indication: LIVER DISORDER
  6. REMICADE [Suspect]
     Indication: PSORIASIS
     Dosage: 8TH INFUSION
     Route: 042
     Dates: start: 20110831
  7. TENORMIN [Concomitant]
     Indication: HYPERTENSION
  8. MILURIT [Concomitant]
     Indication: HYPERURICAEMIA
  9. METHOTREXATE [Concomitant]
     Route: 065

REACTIONS (6)
  - SYNCOPE [None]
  - INFUSION RELATED REACTION [None]
  - HYPERHIDROSIS [None]
  - NAUSEA [None]
  - DRUG INEFFECTIVE [None]
  - PSORIASIS [None]
